FAERS Safety Report 18253610 (Version 1)
Quarter: 2020Q3

REPORT INFORMATION
  Report Type: Report from Study
  Country: US (occurrence: US)
  Receive Date: 20200910
  Receipt Date: 20200910
  Transmission Date: 20201103
  Serious: Yes (Hospitalization)
  Sender: FDA-Public Use
  Company Number: US-ENDO PHARMACEUTICALS INC-2020-005861

PATIENT
  Sex: Female

DRUGS (8)
  1. ABILIFY [Suspect]
     Active Substance: ARIPIPRAZOLE
     Indication: ANXIETY
     Dosage: 2 MG, UNKNOWN (BEFORE LAST MENSTRUAL PERIOD)
     Route: 065
  2. CYMBALTA [Suspect]
     Active Substance: DULOXETINE HYDROCHLORIDE
     Indication: DEPRESSION
     Dosage: UNK UNKNOWN, UNKNOWN (BEFORE LAST MENSTRUAL PERIOD)
     Route: 065
  3. CREON [Suspect]
     Active Substance: PANCRELIPASE AMYLASE\PANCRELIPASE LIPASE\PANCRELIPASE PROTEASE
     Indication: PANCREATITIS
     Dosage: UNK UNKNOWN, UNKNOWN (BEFORE LAST MENSTRUAL PERIOD)
     Route: 065
  4. PERCOCET [Suspect]
     Active Substance: ACETAMINOPHEN\OXYCODONE HYDROCHLORIDE
     Indication: PANCREATITIS
     Dosage: UNK UNKNOWN, UNKNOWN
     Route: 065
     Dates: end: 2016
  5. OMEPRAZOLE. [Suspect]
     Active Substance: OMEPRAZOLE
     Indication: NAUSEA
     Dosage: UNK UNKNOWN, UNKNOWN (BEFORE LAST MENSTRUAL PERIOD)
     Route: 065
  6. SYNTHROID [Suspect]
     Active Substance: LEVOTHYROXINE SODIUM
     Indication: HYPOTHYROIDISM
     Dosage: UNK UNKNOWN, UNKNOWN (BEFORE LAST MENSTRUAL PERIOD)
     Route: 065
  7. LANTUS [Suspect]
     Active Substance: INSULIN GLARGINE
     Indication: TYPE 1 DIABETES MELLITUS
     Dosage: UNK UNKNOWN, UNKNOWN (BEFORE LAST MENSTRUAL PERIOD)
     Route: 065
  8. APIDRA [Suspect]
     Active Substance: INSULIN GLULISINE
     Indication: TYPE 2 DIABETES MELLITUS
     Dosage: UNK UNKNOWN, UNKNOWN (BEFORE LAST MENSTRUAL PERIOD)
     Route: 065

REACTIONS (3)
  - Condition aggravated [Unknown]
  - Maternal exposure during pregnancy [Unknown]
  - Autoimmune pancreatitis [Unknown]
